FAERS Safety Report 13549375 (Version 1)
Quarter: 2017Q2

REPORT INFORMATION
  Report Type: Spontaneous
  Country: US (occurrence: US)
  Receive Date: 20170516
  Receipt Date: 20170516
  Transmission Date: 20170830
  Serious: No
  Sender: FDA-Public Use
  Company Number: US-PFIZER INC-2017211375

PATIENT
  Age: 52 Year
  Sex: Male

DRUGS (2)
  1. GENOTROPIN [Concomitant]
     Active Substance: SOMATROPIN
  2. TESTOSTERONE CIPIONATE [Suspect]
     Active Substance: TESTOSTERONE
     Dosage: 1 ML, UNK(EVERY FOURTEEN DAYS)
     Route: 030

REACTIONS (3)
  - Somnolence [Unknown]
  - Libido decreased [Unknown]
  - Treatment noncompliance [Unknown]
